FAERS Safety Report 6353930-8 (Version None)
Quarter: 2009Q3

REPORT INFORMATION
  Report Type: 
  Country: None (occurrence: None)
  Receive Date: 20090912
  Receipt Date: 20090622
  Transmission Date: 20100115
  Serious: Yes (Hospitalization)
  Sender: FDA-Public Use
  Company Number: US-ABBOTT-08P-163-0483164-00

PATIENT
  Sex: Female
  Weight: 39.498 kg

DRUGS (5)
  1. HUMIRA [Suspect]
     Indication: CROHN'S DISEASE
     Dosage: LOADING DOSE
     Route: 058
     Dates: start: 20070401, end: 20070401
  2. HUMIRA [Suspect]
     Dates: start: 20070401, end: 20071101
  3. HUMIRA [Suspect]
  4. HUMIRA [Suspect]
     Indication: CROHN'S DISEASE
     Dosage: 160 MG LOADING DOSE
     Dates: start: 20081017
  5. PREDNISONE [Suspect]
     Indication: DRUG USE FOR UNKNOWN INDICATION

REACTIONS (2)
  - DRUG DELIVERY SYSTEM MALFUNCTION [None]
  - OSTEONECROSIS [None]
